FAERS Safety Report 5999409-4 (Version None)
Quarter: 2008Q4

REPORT INFORMATION
  Report Type: 
  Country: None (occurrence: None)
  Receive Date: 20081211
  Receipt Date: 20081211
  Transmission Date: 20090506
  Serious: Yes (Life-Threatening)
  Sender: FDA-Public Use
  Company Number: None

PATIENT
  Age: 74 Year
  Sex: Male
  Weight: 72.5 kg

DRUGS (3)
  1. FENTANYL-100 [Suspect]
     Dosage: EPIDURAL
     Route: 008
  2. BUPIVACAINE [Suspect]
  3. SODIUM CHLORIDE [Suspect]

REACTIONS (2)
  - MEDICATION ERROR [None]
  - SEDATION [None]
